FAERS Safety Report 5499692-8 (Version None)
Quarter: 2007Q4

REPORT INFORMATION
  Report Type: 
  Country: None (occurrence: None)
  Receive Date: 20071026
  Receipt Date: 20071016
  Transmission Date: 20080405
  Serious: Yes (Hospitalization, Disabling, Other)
  Sender: FDA-Public Use
  Company Number: GB-PFIZER INC-2007079517

PATIENT
  Age: 19 Year
  Sex: Female

DRUGS (7)
  1. AZITHROMYCIN [Suspect]
     Indication: PSEUDOMONAS INFECTION
  2. GENTAMICIN [Suspect]
     Indication: PSEUDOMONAS INFECTION
     Route: 042
  3. GENTAMICIN [Suspect]
     Route: 042
  4. MEROPENEM [Suspect]
     Indication: PSEUDOMONAS INFECTION
  5. MEROPENEM [Suspect]
  6. TOBRAMYCIN [Suspect]
     Indication: PSEUDOMONAS INFECTION
     Route: 042
  7. TOBRAMYCIN [Suspect]
     Route: 042

REACTIONS (5)
  - BALANCE DISORDER [None]
  - DEAFNESS NEUROSENSORY [None]
  - DIZZINESS [None]
  - RENAL FAILURE ACUTE [None]
  - TINNITUS [None]
